FAERS Safety Report 6992241-4 (Version None)
Quarter: 2010Q3

REPORT INFORMATION
  Report Type: 
  Country: None (occurrence: None)
  Receive Date: 20100917
  Receipt Date: 20100909
  Transmission Date: 20110219
  Serious: Yes (Hospitalization)
  Sender: FDA-Public Use
  Company Number: FR-BRISTOL-MYERS SQUIBB COMPANY-14915839

PATIENT
  Age: 62 Year
  Sex: Male
  Weight: 79 kg

DRUGS (3)
  1. CETUXIMAB [Suspect]
     Indication: NON-SMALL CELL LUNG CANCER
     Dosage: 5MG/ML;RECENT INF 17DEC09;INTERRUPTED ON 23DEC09; RESTARTED 05JAN2010. 09DEC-23DEC10:14D
     Route: 042
     Dates: start: 20091209
  2. CISPLATIN [Suspect]
     Indication: NON-SMALL CELL LUNG CANCER
     Dosage: 3.0895MG/M2(80MG/M2 D1 OF 21D CYCLE) INTERRUPTED 23DEC09 RESTARTED 05JAN2010 09DEC-23DEC10:14D
     Route: 042
     Dates: start: 20091209
  3. VINORELBINE [Suspect]
     Indication: NON-SMALL CELL LUNG CANCER
     Dosage: D1,8 OF 21D CYCLE;RECENT INF ON 17DEC09 INTERRUPTED 23DEC09 RESTARTED 05JAN2010 09DEC-23DEC10:14D
     Route: 042
     Dates: start: 20091209

REACTIONS (1)
  - FEBRILE BONE MARROW APLASIA [None]
